FAERS Safety Report 21460678 (Version 2)
Quarter: 2022Q4

REPORT INFORMATION
  Report Type: Spontaneous
  Country: GB (occurrence: GB)
  Receive Date: 20221015
  Receipt Date: 20221122
  Transmission Date: 20230113
  Serious: Yes (Hospitalization, Other)
  Sender: FDA-Public Use
  Company Number: GB-BAXTER-2022BAX017706

PATIENT
  Age: 12 Year
  Sex: Female

DRUGS (4)
  1. MEROPENEM [Suspect]
     Active Substance: MEROPENEM
     Indication: Cystic fibrosis
     Dosage: UNK
     Route: 042
     Dates: start: 20220802, end: 20220805
  2. CEFTAZIDIME [Suspect]
     Active Substance: CEFTAZIDIME
     Indication: Antibiotic therapy
     Dosage: 2500 MG VIA INTERMATE SV 200
     Route: 042
     Dates: start: 20220810
  3. SODIUM CHLORIDE [Suspect]
     Active Substance: SODIUM CHLORIDE
     Indication: Medication dilution
     Dosage: UNK, 100 ML, VIA INTERMATE SV 200
     Route: 042
     Dates: start: 20220810
  4. SODIUM CHLORIDE [Suspect]
     Active Substance: SODIUM CHLORIDE
     Dosage: UNK, VIA INTERMATE SV 200
     Route: 042
     Dates: start: 20220802, end: 20220805

REACTIONS (8)
  - Infection [Unknown]
  - Pyrexia [Unknown]
  - Poor quality product administered [Unknown]
  - Device issue [Unknown]
  - Product deposit [Unknown]
  - C-reactive protein increased [Unknown]
  - Sepsis [Recovered/Resolved]
  - Vascular device infection [Recovered/Resolved]

NARRATIVE: CASE EVENT DATE: 20220801
